FAERS Safety Report 17313269 (Version 4)
Quarter: 2020Q1

REPORT INFORMATION
  Report Type: Report from Study
  Country: None (occurrence: CH)
  Receive Date: 20200124
  Receipt Date: 20200312
  Transmission Date: 20200409
  Serious: Yes (Hospitalization)
  Sender: FDA-Public Use
  Company Number: CH-ABBVIE-20K-151-3241453-00

PATIENT
  Age: 67 Year
  Sex: Male

DRUGS (3)
  1. DUODOPA [Suspect]
     Active Substance: CARBIDOPA\LEVODOPA
     Indication: PARKINSON^S DISEASE
     Route: 050
     Dates: start: 20141209, end: 20190301
  2. DUODOPA [Suspect]
     Active Substance: CARBIDOPA\LEVODOPA
     Dosage: M.D: 5.0 ML/H, C.D : 3.2 ML/H, CD NIGHT 1.1 ML/H, E.D: 1.0 ML;
     Route: 050
     Dates: start: 20191223
  3. DUODOPA [Suspect]
     Active Substance: CARBIDOPA\LEVODOPA
     Dosage: M.D: 5.0 ML/H, C.D DAY RATE: 3.7ML/H, C.D NIGHT RATE 1.1 ML/H, EXTRA DOSE: 1.0 ML;
     Route: 050
     Dates: start: 20190301, end: 20191223

REACTIONS (2)
  - Device leakage [Recovered/Resolved]
  - Haematemesis [Recovered/Resolved]

NARRATIVE: CASE EVENT DATE: 202001
